FAERS Safety Report 7212724-1 (Version None)
Quarter: 2011Q1

REPORT INFORMATION
  Report Type: 
  Country: None (occurrence: None)
  Receive Date: 20110106
  Receipt Date: 20101224
  Transmission Date: 20110831
  Serious: Yes (Hospitalization)
  Sender: FDA-Public Use
  Company Number: NL-ELI_LILLY_AND_COMPANY-NL201012006203

PATIENT
  Sex: Female

DRUGS (4)
  1. NEXIUM [Concomitant]
  2. PROZAC [Suspect]
     Dosage: 40 MG, DAILY (1/D)
  3. VERAPAMIL [Concomitant]
  4. SANDOMIGRAN [Concomitant]

REACTIONS (1)
  - DYSPNOEA [None]
